FAERS Safety Report 8305568 (Version 2)
Quarter: 2012Q4

REPORT INFORMATION
  Report Type: 
  Country: US (occurrence: US)
  Receive Date: 20111221
  Receipt Date: 20121214
  Transmission Date: 20130627
  Serious: Yes (Hospitalization, Other)
  Sender: FDA-Public Use
  Company Number: US-BAYER-2011-120297

PATIENT
  Age: 48 Year
  Sex: Female
  Weight: 72.56 kg

DRUGS (1)
  1. YASMIN [Suspect]
     Dosage: UNK
     Dates: start: 200602, end: 20060830

REACTIONS (25)
  - Pulmonary embolism [None]
  - Deep vein thrombosis [Recovering/Resolving]
  - Pain [None]
  - Injury [None]
  - Emotional distress [None]
  - General physical health deterioration [None]
  - Anxiety [None]
  - Anhedonia [None]
  - Convulsion [None]
  - Loss of consciousness [None]
  - Hypoxia [None]
  - Dyspnoea [None]
  - Syncope [None]
  - Chest pain [None]
  - Tachycardia [None]
  - Palpitations [None]
  - Hyperhidrosis [None]
  - Vomiting [None]
  - Nausea [None]
  - Tremor [None]
  - Muscle spasms [Recovering/Resolving]
  - Pallor [None]
  - Fear [None]
  - Chest discomfort [None]
  - Asthenia [None]
